FAERS Safety Report 5470316-9 (Version None)
Quarter: 2007Q3

REPORT INFORMATION
  Report Type: 
  Country: None (occurrence: None)
  Receive Date: 20070925
  Receipt Date: 20070911
  Transmission Date: 20080115
  Serious: Yes (Hospitalization, Other)
  Sender: FDA-Public Use
  Company Number: CHNY2007BR03172

PATIENT
  Age: 76 Year
  Sex: Female
  Weight: 82 kg

DRUGS (5)
  1. BUFFERIN [Suspect]
     Dosage: 1 DF, QD, ORAL
     Route: 048
  2. PROPRANOLOL HYDROCHLORIDE [Concomitant]
  3. LEXOTAN (BROMAZEPAM) [Concomitant]
  4. GALVUS MET [Concomitant]
  5. GLUCOFORMIN (METFORMIN HYDROCHLORIDE) [Concomitant]

REACTIONS (6)
  - DIZZINESS [None]
  - FALL [None]
  - LOWER LIMB FRACTURE [None]
  - PAIN IN EXTREMITY [None]
  - SYNCOPE [None]
  - WALKING AID USER [None]
